FAERS Safety Report 25619917 (Version 2)
Quarter: 2025Q3

REPORT INFORMATION
  Report Type: Report from Study
  Country: US (occurrence: US)
  Receive Date: 20250730
  Receipt Date: 20250812
  Transmission Date: 20251021
  Serious: Yes (Other)
  Sender: ABBVIE
  Company Number: US-ABBVIE-6389457

PATIENT
  Sex: Female

DRUGS (1)
  1. HUMIRA [Suspect]
     Active Substance: ADALIMUMAB
     Indication: Colitis ulcerative
     Route: 058
     Dates: start: 20231215

REACTIONS (6)
  - Fibula fracture [Not Recovered/Not Resolved]
  - Constipation [Recovering/Resolving]
  - Weight increased [Not Recovered/Not Resolved]
  - Anaemia [Not Recovered/Not Resolved]
  - Dairy intolerance [Not Recovered/Not Resolved]
  - Foot deformity [Recovering/Resolving]
